FAERS Safety Report 16023296 (Version 2)
Quarter: 2019Q1

REPORT INFORMATION
  Report Type: Spontaneous
  Country: US (occurrence: US)
  Receive Date: 20190301
  Receipt Date: 20190304
  Transmission Date: 20190418
  Serious: Yes (Other)
  Sender: FDA-Public Use
  Company Number: US-AMGEN-USASP2019031471

PATIENT
  Age: 57 Year
  Sex: Female

DRUGS (13)
  1. AMBIEN [Concomitant]
     Active Substance: ZOLPIDEM TARTRATE
     Dosage: 10 MG, UNK
  2. EZETIMIBE. [Concomitant]
     Active Substance: EZETIMIBE
     Dosage: 10 MG, UNK
  3. BUTRANS [Concomitant]
     Active Substance: BUPRENORPHINE
     Dosage: 7.5 MUG/HR
  4. HYDROCHLOROTH [Concomitant]
     Active Substance: HYDROCHLOROTHIAZIDE
     Dosage: 25 MG, UNK
  5. TYLENOL [Concomitant]
     Active Substance: ACETAMINOPHEN
     Dosage: 325 MG, UNK
  6. PROTONIX [Concomitant]
     Active Substance: PANTOPRAZOLE SODIUM
     Dosage: 20 MG, UNK
  7. ADVIL [Concomitant]
     Active Substance: IBUPROFEN
     Dosage: 200 MG, UNK
  8. LEVOTHYROXIN [Concomitant]
     Active Substance: LEVOTHYROXINE
     Dosage: 112 MUG, UNK
  9. ENBREL [Suspect]
     Active Substance: ETANERCEPT
     Indication: RHEUMATOID ARTHRITIS
     Dosage: 50 MG, QWK
     Route: 058
  10. POTASSIUM CHLORATE [Concomitant]
     Active Substance: POTASSIUM CHLORATE
     Dosage: 10 MEQ, UNK
  11. PROGESTERONE. [Concomitant]
     Active Substance: PROGESTERONE
     Dosage: 200 MG, UNK
  12. MOVANTIK [Concomitant]
     Active Substance: NALOXEGOL OXALATE
     Dosage: 25 MG, UNK
  13. OXTELLAR [Concomitant]
     Dosage: 600 MG, UNK

REACTIONS (7)
  - Depression [Unknown]
  - Malaise [Recovered/Resolved]
  - Pain [Unknown]
  - Ill-defined disorder [Unknown]
  - Rheumatoid arthritis [Unknown]
  - Blood cholesterol increased [Unknown]
  - Anxiety [Unknown]

NARRATIVE: CASE EVENT DATE: 201901
